FAERS Safety Report 19448234 (Version 2)
Quarter: 2021Q4

REPORT INFORMATION
  Report Type: Spontaneous
  Country: US (occurrence: US)
  Receive Date: 20210622
  Receipt Date: 20211221
  Transmission Date: 20220303
  Serious: No
  Sender: FDA-Public Use
  Company Number: US-SA-SAC20210621000191

PATIENT
  Age: 54 Year
  Sex: Female

DRUGS (22)
  1. DUPIXENT [Suspect]
     Active Substance: DUPILUMAB
     Indication: Asthma
     Dosage: 200 MG, QOW
     Route: 058
     Dates: start: 202105
  2. BACLOFEN [Concomitant]
     Active Substance: BACLOFEN
  3. HYDROXYZINE HYDROCHLORIDE [Concomitant]
     Active Substance: HYDROXYZINE HYDROCHLORIDE
  4. DULOXETINE [Concomitant]
     Active Substance: DULOXETINE
     Indication: Major depression
  5. PRAMIPEXOLE [Concomitant]
     Active Substance: PRAMIPEXOLE
  6. SYNTHROID [Concomitant]
     Active Substance: LEVOTHYROXINE SODIUM
  7. ROPINIROLE [Concomitant]
     Active Substance: ROPINIROLE
  8. PREGABALIN [Concomitant]
     Active Substance: PREGABALIN
  9. PROAIR HFA [Concomitant]
     Active Substance: ALBUTEROL SULFATE
  10. SUMATRIPTAN [Concomitant]
     Active Substance: SUMATRIPTAN
  11. LORAZEPAM [Concomitant]
     Active Substance: LORAZEPAM
  12. POTASSIUM CHLORIDE [Concomitant]
     Active Substance: POTASSIUM CHLORIDE
  13. DORZOLAMIDE [Concomitant]
     Active Substance: DORZOLAMIDE
  14. TIMOLOL [Concomitant]
     Active Substance: TIMOLOL
  15. FUROSEMIDE [Concomitant]
     Active Substance: FUROSEMIDE
  16. RISPERIDONE [Concomitant]
     Active Substance: RISPERIDONE
  17. FAMOTIDINE [Concomitant]
     Active Substance: FAMOTIDINE
  18. ONDANSETRON [Concomitant]
     Active Substance: ONDANSETRON
  19. LATANOPROST [Concomitant]
     Active Substance: LATANOPROST
  20. LAMOTRIGINE [Concomitant]
     Active Substance: LAMOTRIGINE
  21. ESTRADIOL [Concomitant]
     Active Substance: ESTRADIOL
  22. VENLAFAXINE [Concomitant]
     Active Substance: VENLAFAXINE HYDROCHLORIDE

REACTIONS (3)
  - Wheezing [Unknown]
  - Asthma [Unknown]
  - Product dose omission issue [Unknown]

NARRATIVE: CASE EVENT DATE: 20210101
